FAERS Safety Report 15650389 (Version 2)
Quarter: 2018Q4

REPORT INFORMATION
  Report Type: Report from Study
  Country: None (occurrence: FI)
  Receive Date: 20181123
  Receipt Date: 20181127
  Transmission Date: 20190205
  Serious: Yes (Hospitalization)
  Sender: FDA-Public Use
  Company Number: FI-ABBVIE-18S-055-2559385-00

PATIENT
  Sex: Male

DRUGS (2)
  1. DUODOPA [Suspect]
     Active Substance: CARBIDOPA\LEVODOPA
     Indication: PARKINSON^S DISEASE
     Dosage: CONTINUOUS INFUSION: 4.1 ML
     Route: 050
     Dates: start: 20141201, end: 201811
  2. DUODOPA [Suspect]
     Active Substance: CARBIDOPA\LEVODOPA
     Dosage: CONTINUOUS INFUSION: 3.9 ML
     Route: 050
     Dates: start: 201811

REACTIONS (4)
  - Inflammation of wound [Recovered/Resolved]
  - Neuralgia [Unknown]
  - Device issue [Not Recovered/Not Resolved]
  - Tremor [Unknown]

NARRATIVE: CASE EVENT DATE: 2018
